FAERS Safety Report 25619052 (Version 2)
Quarter: 2025Q3

REPORT INFORMATION
  Report Type: Spontaneous
  Country: EU (occurrence: EU)
  Receive Date: 20250729
  Receipt Date: 20250801
  Transmission Date: 20251021
  Serious: Yes (Other)
  Sender: MYLAN
  Company Number: EU-TEVA-VS-3349053

PATIENT
  Age: 71 Year
  Sex: Male

DRUGS (16)
  1. METHOTREXATE [Suspect]
     Active Substance: METHOTREXATE
     Indication: Eosinophilic granulomatosis with polyangiitis
  2. METHOTREXATE [Suspect]
     Active Substance: METHOTREXATE
  3. METHOTREXATE [Suspect]
     Active Substance: METHOTREXATE
     Route: 065
  4. METHOTREXATE [Suspect]
     Active Substance: METHOTREXATE
     Route: 065
  5. METHOTREXATE [Suspect]
     Active Substance: METHOTREXATE
     Dosage: 20 MILLIGRAM, QW
     Dates: start: 2021, end: 202312
  6. METHOTREXATE [Suspect]
     Active Substance: METHOTREXATE
     Dosage: 20 MILLIGRAM, QW
     Dates: start: 2021, end: 202312
  7. METHOTREXATE [Suspect]
     Active Substance: METHOTREXATE
     Dosage: 20 MILLIGRAM, QW
     Route: 065
     Dates: start: 2021, end: 202312
  8. METHOTREXATE [Suspect]
     Active Substance: METHOTREXATE
     Dosage: 20 MILLIGRAM, QW
     Route: 065
     Dates: start: 2021, end: 202312
  9. CYCLOPHOSPHAMIDE [Suspect]
     Active Substance: CYCLOPHOSPHAMIDE
     Indication: Eosinophilic granulomatosis with polyangiitis
  10. CYCLOPHOSPHAMIDE [Suspect]
     Active Substance: CYCLOPHOSPHAMIDE
     Route: 042
  11. CYCLOPHOSPHAMIDE [Suspect]
     Active Substance: CYCLOPHOSPHAMIDE
     Route: 042
  12. CYCLOPHOSPHAMIDE [Suspect]
     Active Substance: CYCLOPHOSPHAMIDE
  13. RUXOLITINIB [Concomitant]
     Active Substance: RUXOLITINIB
     Indication: Myelofibrosis
  14. RUXOLITINIB [Concomitant]
     Active Substance: RUXOLITINIB
     Route: 065
  15. RUXOLITINIB [Concomitant]
     Active Substance: RUXOLITINIB
     Route: 065
  16. RUXOLITINIB [Concomitant]
     Active Substance: RUXOLITINIB

REACTIONS (1)
  - B-cell lymphoma [Recovered/Resolved]

NARRATIVE: CASE EVENT DATE: 20230101
